FAERS Safety Report 10031676 (Version 1)
Quarter: 2014Q1

REPORT INFORMATION
  Report Type: Spontaneous
  Country: US (occurrence: US)
  Receive Date: 20140324
  Receipt Date: 20140324
  Transmission Date: 20141002
  Serious: No
  Sender: FDA-Public Use
  Company Number: US-PFIZER INC-2014083061

PATIENT
  Sex: Female

DRUGS (4)
  1. XELJANZ [Suspect]
     Dosage: UNK
  2. METHOTREXATE SODIUM [Suspect]
     Dosage: UNK
  3. ULTRAM [Suspect]
     Dosage: UNK
  4. TYLENOL [Suspect]
     Dosage: UNK

REACTIONS (2)
  - Herpes simplex [Unknown]
  - Onychomycosis [Unknown]
